FAERS Safety Report 5610423-0 (Version None)
Quarter: 2008Q1

REPORT INFORMATION
  Report Type: 
  Country: None (occurrence: None)
  Receive Date: 20080128
  Receipt Date: 20080115
  Transmission Date: 20080703
  Serious: Yes (Hospitalization, Other)
  Sender: FDA-Public Use
  Company Number: 237992K06USA

PATIENT
  Age: 12 Year
  Sex: Female

DRUGS (5)
  1. REBIF [Suspect]
     Indication: OFF LABEL USE
     Dosage: 44 MCG, 3 IN 1 WEEKS, SUBCUTANEOUS, 22 MCG, 3 IN 1 WEEKS, SUBCUTANEOUS
     Route: 058
     Dates: start: 20070301, end: 20071112
  2. REBIF [Suspect]
     Indication: OFF LABEL USE
     Dosage: 44 MCG, 3 IN 1 WEEKS, SUBCUTANEOUS, 22 MCG, 3 IN 1 WEEKS, SUBCUTANEOUS
     Route: 058
     Dates: start: 20061012
  3. COPAXONE [Suspect]
     Indication: MULTIPLE SCLEROSIS
     Dosage: NOT REPORTED, NOT REPORTED, NOT
  4. INTRAVENOUS STEROIDS (CORTICOSTEROIDS) [Concomitant]
  5. ORAL STEROIDS (CORTICOSTEROIDS) [Concomitant]

REACTIONS (10)
  - AMNESIA [None]
  - CONVULSION [None]
  - DEATH OF RELATIVE [None]
  - LOSS OF CONSCIOUSNESS [None]
  - MALAISE [None]
  - MYOCLONIC EPILEPSY [None]
  - NUCLEAR MAGNETIC RESONANCE IMAGING ABNORMAL [None]
  - OFF LABEL USE [None]
  - PAIN IN EXTREMITY [None]
  - STRESS [None]
